FAERS Safety Report 5359000-X (Version None)
Quarter: 2007Q2

REPORT INFORMATION
  Report Type: 
  Country: None (occurrence: None)
  Receive Date: 20070615
  Receipt Date: 20070608
  Transmission Date: 20071010
  Serious: Yes (Other)
  Sender: FDA-Public Use
  Company Number: B0475337A

PATIENT
  Age: 55 Year
  Weight: 73 kg

DRUGS (3)
  1. NIQUITIN [Suspect]
     Indication: DRUG USE FOR UNKNOWN INDICATION
     Route: 062
     Dates: start: 20070301
  2. BECLOMETHASONE DIPROPIONATE [Concomitant]
     Route: 055
  3. SALBUTAMOL [Concomitant]
     Route: 055

REACTIONS (3)
  - ARTHRALGIA [None]
  - DIARRHOEA [None]
  - HOT FLUSH [None]
